FAERS Safety Report 13265607 (Version 2)
Quarter: 2017Q2

REPORT INFORMATION
  Report Type: Spontaneous
  Country: US (occurrence: US)
  Receive Date: 20170223
  Receipt Date: 20170517
  Transmission Date: 20170830
  Serious: Yes (Hospitalization, Other)
  Sender: FDA-Public Use
  Company Number: US-SAOL THERAPEUTICS-2017SAO00352

PATIENT
  Age: 34 Year
  Sex: Male

DRUGS (15)
  1. CLONIDINE. [Suspect]
     Active Substance: CLONIDINE
     Dosage: 175.74 ?G, \DAY
     Route: 037
  2. MORPHINE [Suspect]
     Active Substance: MORPHINE
     Dosage: 22.495 ?G, \DAY
     Route: 037
  3. CLONIDINE. [Suspect]
     Active Substance: CLONIDINE
     Dosage: 109.9 ?G, \DAY
     Route: 037
  4. BUPIVICAINE [Suspect]
     Active Substance: BUPIVACAINE
     Dosage: 109.93 MG, \DAY
     Route: 037
  5. COMPOUNDED BACLOFEN [Suspect]
     Active Substance: BACLOFEN
     Indication: PAIN
  6. BACLOFEN. [Suspect]
     Active Substance: BACLOFEN
     Indication: SPINAL PAIN
     Dosage: 7 ?G, \DAY
     Route: 037
  7. FENTANYL. [Suspect]
     Active Substance: FENTANYL
     Dosage: 39.8 ?G, \DAY
     Route: 037
  8. FENTANYL. [Suspect]
     Active Substance: FENTANYL
     Dosage: 464.7 ?G, \DAY
     Route: 037
  9. BUPIVICAINE [Suspect]
     Active Substance: BUPIVACAINE
     Dosage: 175.74 MG, \DAY
     Route: 037
  10. BUPIVICAINE [Suspect]
     Active Substance: BUPIVACAINE
     Dosage: 4.357 MG, \DAY
     Route: 037
  11. MORPHINE [Suspect]
     Active Substance: MORPHINE
     Dosage: 5.496 MG, \DAY
     Route: 037
  12. MORPHINE [Suspect]
     Active Substance: MORPHINE
     Dosage: 5.80 MG, \DAY
     Route: 037
  13. COMPOUNDED BACLOFEN [Suspect]
     Active Substance: BACLOFEN
     Indication: SPINAL PAIN
     Dosage: 116.18 ?G, \DAY
     Route: 037
  14. FENTANYL. [Suspect]
     Active Substance: FENTANYL
     Dosage: 351.5 ?G, \DAY
     Route: 037
  15. CLONIDINE. [Suspect]
     Active Substance: CLONIDINE
     Dosage: 116.18 ?G, \DAY
     Route: 037

REACTIONS (19)
  - Syncope [Unknown]
  - Vision blurred [Unknown]
  - Device failure [Unknown]
  - Device connection issue [Unknown]
  - Feeling hot [Unknown]
  - Drug ineffective for unapproved indication [Recovered/Resolved]
  - Implant site extravasation [Unknown]
  - Headache [Unknown]
  - Feeling jittery [Unknown]
  - Off label use [Unknown]
  - Somnolence [Unknown]
  - Hyperhidrosis [Unknown]
  - Dysuria [Unknown]
  - Vomiting [Unknown]
  - Malaise [Unknown]
  - Complication associated with device [Recovered/Resolved]
  - Asthenia [Unknown]
  - Infusion site fibrosis [Unknown]
  - Drug withdrawal syndrome [Unknown]

NARRATIVE: CASE EVENT DATE: 201308
